FAERS Safety Report 17892588 (Version 3)
Quarter: 2020Q3

REPORT INFORMATION
  Report Type: Spontaneous
  Country: US (occurrence: US)
  Receive Date: 20200612
  Receipt Date: 20200714
  Transmission Date: 20201103
  Serious: Yes (Other)
  Sender: FDA-Public Use
  Company Number: US-GILEAD-2020-0470679

PATIENT
  Age: 69 Year
  Sex: Male
  Weight: 76.8 kg

DRUGS (15)
  1. REMDESIVIR. [Suspect]
     Active Substance: REMDESIVIR
     Indication: COVID-19
     Dosage: 200 MG, ONCE
     Route: 042
     Dates: start: 20200602, end: 20200602
  2. CEFTRIAXONE. [Concomitant]
     Active Substance: CEFTRIAXONE
     Dosage: 1000 MG
     Route: 042
     Dates: start: 20200602
  3. AZITHROMYCIN ANHYDROUS. [Concomitant]
     Active Substance: AZITHROMYCIN ANHYDROUS
     Dosage: 500 MG
     Route: 042
     Dates: start: 20200602
  4. METHYLPREDNISOLONE. [Concomitant]
     Active Substance: METHYLPREDNISOLONE
     Dosage: 40 MG
     Route: 042
     Dates: start: 20200602
  5. NS [Concomitant]
     Active Substance: SODIUM CHLORIDE
  6. IPRATROPIUM BROMIDE AND ALBUTEROL SULFATE [Concomitant]
     Active Substance: ALBUTEROL SULFATE\IPRATROPIUM BROMIDE
     Dosage: 1 PUFF
     Route: 055
     Dates: start: 20200602
  7. MORPHINE [Concomitant]
     Active Substance: MORPHINE
  8. ONDANSETRON [Concomitant]
     Active Substance: ONDANSETRON
  9. THIAMINE. [Concomitant]
     Active Substance: THIAMINE
  10. QUETIAPINE [QUETIAPINE FUMARATE] [Concomitant]
     Active Substance: QUETIAPINE FUMARATE
     Dosage: 200 MG
     Route: 048
     Dates: start: 20200602
  11. HEPARIN [Concomitant]
     Active Substance: HEPARIN SODIUM
     Dosage: 7500 UNITS
     Route: 058
     Dates: start: 20200602
  12. PRAVASTATIN. [Concomitant]
     Active Substance: PRAVASTATIN
  13. ACETAMINOPHEN. [Concomitant]
     Active Substance: ACETAMINOPHEN
  14. ALBUTEROL [SALBUTAMOL] [Concomitant]
     Active Substance: ALBUTEROL
  15. IOHEXOL [Concomitant]
     Active Substance: IOHEXOL

REACTIONS (5)
  - Infusion related reaction [Recovered/Resolved]
  - Blood pressure decreased [Recovered/Resolved]
  - Heart rate decreased [Recovered/Resolved]
  - Chills [Recovered/Resolved]
  - Hyperhidrosis [Recovered/Resolved]

NARRATIVE: CASE EVENT DATE: 20200602
